FAERS Safety Report 18649410 (Version 1)
Quarter: 2020Q4

REPORT INFORMATION
  Report Type: Other
  Country: GB (occurrence: GB)
  Receive Date: 20201222
  Receipt Date: 20201222
  Transmission Date: 20210114
  Serious: No
  Sender: FDA-Public Use
  Company Number: GB-LUPIN PHARMACEUTICALS INC.-2020-10630

PATIENT
  Age: 58 Year
  Sex: Male
  Weight: 77.56 kg

DRUGS (1)
  1. LEVETIRACETAM. [Suspect]
     Active Substance: LEVETIRACETAM
     Indication: TONIC CONVULSION
     Dosage: 500 MILLIGRAM, UNK
     Route: 048
     Dates: start: 20201113, end: 20201118

REACTIONS (3)
  - Pain [Unknown]
  - Drug eruption [Recovering/Resolving]
  - Pruritus [Unknown]

NARRATIVE: CASE EVENT DATE: 2020
